FAERS Safety Report 5990890-3 (Version None)
Quarter: 2008Q4

REPORT INFORMATION
  Report Type: 
  Country: None (occurrence: None)
  Receive Date: 20081211
  Receipt Date: 20081202
  Transmission Date: 20090506
  Serious: No
  Sender: FDA-Public Use
  Company Number: GB-ABBOTT-08P-167-0490273-00

PATIENT
  Sex: Female

DRUGS (2)
  1. HUMIRA [Suspect]
     Indication: CROHN'S DISEASE
     Dosage: 80 MG LOADING DOSE
  2. HUMIRA [Suspect]
     Dosage: 40 MG, SECOND DOSE

REACTIONS (3)
  - HEAT RASH [None]
  - RASH ERYTHEMATOUS [None]
  - RASH PRURITIC [None]
